FAERS Safety Report 5031387-7 (Version None)
Quarter: 2006Q2

REPORT INFORMATION
  Report Type: 
  Country: None (occurrence: None)
  Receive Date: 20060621
  Receipt Date: 20060613
  Transmission Date: 20061013
  Serious: Yes (Other)
  Sender: FDA-Public Use
  Company Number: US-ROCHE-451698

PATIENT
  Sex: Male

DRUGS (2)
  1. ACCUTANE [Suspect]
     Indication: DRUG USE FOR UNKNOWN INDICATION
     Route: 048
     Dates: start: 19920615
  2. ACCUTANE [Suspect]
     Route: 048
     Dates: start: 19980615

REACTIONS (3)
  - DEPRESSION [None]
  - RENAL DISORDER [None]
  - SUPRAVENTRICULAR TACHYCARDIA [None]
